FAERS Safety Report 6701113-1 (Version None)
Quarter: 2010Q2

REPORT INFORMATION
  Report Type: 
  Country: None (occurrence: None)
  Receive Date: 20100428
  Receipt Date: 20100422
  Transmission Date: 20101027
  Serious: Yes (Hospitalization, Other)
  Sender: FDA-Public Use
  Company Number: BR-ABBOTT-10P-020-0625145-00

PATIENT
  Sex: Female
  Weight: 77 kg

DRUGS (12)
  1. HUMIRA [Suspect]
     Indication: RHEUMATOID ARTHRITIS
     Route: 058
     Dates: end: 20091101
  2. HUMIRA [Suspect]
     Route: 058
     Dates: start: 20100328
  3. PANTOPRAZOLE [Concomitant]
     Indication: GASTRIC DISORDER
     Route: 048
  4. CARVEDILOL [Concomitant]
     Indication: HYPERTENSION
     Route: 048
  5. DAFLON [Concomitant]
     Indication: PROPHYLAXIS
     Route: 048
  6. DAFLON [Concomitant]
     Indication: SWELLING
  7. BUFFERIN CARDIO [Concomitant]
     Indication: ANTICOAGULANT THERAPY
     Route: 048
  8. ATORVASTATIN [Concomitant]
     Indication: BLOOD CHOLESTEROL INCREASED
     Route: 048
  9. SPIRONOLACTONE [Concomitant]
     Indication: DIURETIC THERAPY
     Route: 048
  10. VALSIVA [Concomitant]
     Indication: OSTEOPOROSIS
     Route: 048
  11. OSCAL D [Concomitant]
     Indication: OSTEOPOROSIS
     Route: 048
  12. NEUTROFER [Concomitant]
     Indication: ANAEMIA
     Route: 048

REACTIONS (1)
  - HERNIA [None]
